FAERS Safety Report 8974420 (Version 3)
Quarter: 2013Q1

REPORT INFORMATION
  Report Type: Report from Study
  Country: DE (occurrence: DE)
  Receive Date: 20121219
  Receipt Date: 20130219
  Transmission Date: 20140127
  Serious: Yes (Hospitalization)
  Sender: FDA-Public Use
  Company Number: DE-ABBOTT-12P-062-1023675-00

PATIENT
  Sex: Female
  Weight: 84 kg

DRUGS (4)
  1. HUMIRA [Suspect]
     Indication: ANKYLOSING SPONDYLITIS
     Route: 058
     Dates: start: 201202, end: 201211
  2. IBUPROFEN [Concomitant]
     Indication: ANKYLOSING SPONDYLITIS
     Dosage: UP TO 1200 MG
     Route: 048
  3. PANTOPRAZOLE [Concomitant]
     Indication: GASTRIC DISORDER
     Route: 048
  4. PANTOPRAZOLE [Concomitant]
     Indication: PROPHYLAXIS

REACTIONS (5)
  - Rheumatic disorder [Unknown]
  - Cough [Recovered/Resolved]
  - Pyrexia [Recovered/Resolved]
  - General physical health deterioration [Unknown]
  - Temporal arteritis [Unknown]
